FAERS Safety Report 14219227 (Version 1)
Quarter: 2017Q4

REPORT INFORMATION
  Report Type: Spontaneous
  Country: US (occurrence: US)
  Receive Date: 20171123
  Receipt Date: 20171123
  Transmission Date: 20180321
  Serious: Yes (Other)
  Sender: FDA-Public Use
  Company Number: US-JNJFOC-20171027101

PATIENT
  Sex: Male

DRUGS (1)
  1. RISPERDAL CONSTA [Suspect]
     Active Substance: RISPERIDONE
     Indication: SCHIZOAFFECTIVE DISORDER
     Dosage: FEW WEEKS AGO
     Route: 030
     Dates: start: 2017, end: 2017

REACTIONS (1)
  - Schizoaffective disorder [Unknown]

NARRATIVE: CASE EVENT DATE: 2017
